FAERS Safety Report 6377022-7 (Version None)
Quarter: 2009Q3

REPORT INFORMATION
  Report Type: 
  Country: None (occurrence: None)
  Receive Date: 20090925
  Receipt Date: 20090922
  Transmission Date: 20100115
  Serious: Yes (Other)
  Sender: FDA-Public Use
  Company Number: ZA-JNJFOC-20090907270

PATIENT
  Age: 60 Year
  Sex: Female

DRUGS (1)
  1. VERMOX [Suspect]
     Indication: HELMINTHIC INFECTION
     Dosage: FOR 3 DAYS
     Route: 048

REACTIONS (1)
  - DIZZINESS [None]
